FAERS Safety Report 8127850-2 (Version None)
Quarter: 2012Q1

REPORT INFORMATION
  Report Type: 
  Country: None (occurrence: None)
  Receive Date: 20120210
  Receipt Date: 20110818
  Transmission Date: 20120608
  Serious: No
  Sender: FDA-Public Use
  Company Number: US-GLAXOSMITHKLINE-A0942405A

PATIENT
  Sex: Female

DRUGS (2)
  1. BIRTH CONTROL [Concomitant]
  2. PAXIL [Suspect]
     Indication: PRODUCT USED FOR UNKNOWN INDICATION
     Dosage: 30MG PER DAY
     Route: 065
     Dates: start: 20020101

REACTIONS (8)
  - WEIGHT LOSS POOR [None]
  - WITHDRAWAL SYNDROME [None]
  - PARAESTHESIA [None]
  - BLEPHAROSPASM [None]
  - LIBIDO DECREASED [None]
  - VOMITING [None]
  - WEIGHT INCREASED [None]
  - NAUSEA [None]
